FAERS Safety Report 7229520-1 (Version None)
Quarter: 2011Q1

REPORT INFORMATION
  Report Type: 
  Country: None (occurrence: None)
  Receive Date: 20110117
  Receipt Date: 20100428
  Transmission Date: 20110831
  Serious: No
  Sender: FDA-Public Use
  Company Number: US-TYCO HEALTHCARE/MALLINCKRODT-T201001162

PATIENT

DRUGS (2)
  1. OPTIRAY 350 [Suspect]
     Dosage: UNK
     Dates: start: 20091214, end: 20091214
  2. OPTIMARK [Suspect]
     Dosage: UNK
     Dates: start: 20091214, end: 20091214

REACTIONS (1)
  - RASH [None]
